FAERS Safety Report 7117850-3 (Version None)
Quarter: 2010Q4

REPORT INFORMATION
  Report Type: 
  Country: None (occurrence: None)
  Receive Date: 20101118
  Receipt Date: 20101118
  Transmission Date: 20110411
  Serious: Yes (Life-Threatening, Hospitalization)
  Sender: FDA-Public Use
  Company Number: None

PATIENT
  Age: 78 Year
  Sex: Male
  Weight: 74.8435 kg

DRUGS (2)
  1. DAYPRO [Suspect]
     Indication: POST PROCEDURAL SWELLING
     Dates: start: 20040601
  2. DAYPRO [Suspect]
     Indication: POST PROCEDURAL SWELLING
     Dates: start: 20040801

REACTIONS (5)
  - ASTHENIA [None]
  - FEELING ABNORMAL [None]
  - GASTROINTESTINAL HAEMORRHAGE [None]
  - HAEMOGLOBIN DECREASED [None]
  - PALPITATIONS [None]
